FAERS Safety Report 14347925 (Version 8)
Quarter: 2020Q1

REPORT INFORMATION
  Report Type: Spontaneous
  Country: US (occurrence: US)
  Receive Date: 20180103
  Receipt Date: 20200123
  Transmission Date: 20200409
  Serious: No
  Sender: FDA-Public Use
  Company Number: US-PFIZER INC-2017554250

PATIENT
  Age: 71 Year
  Sex: Female

DRUGS (1)
  1. IBRANCE [Suspect]
     Active Substance: PALBOCICLIB
     Indication: BREAST CANCER FEMALE
     Dosage: 100 MG, UNK

REACTIONS (5)
  - White blood cell count decreased [Unknown]
  - Blood count abnormal [Unknown]
  - Fatigue [Unknown]
  - Foot fracture [Unknown]
  - Panic attack [Unknown]
